FAERS Safety Report 7883582-7 (Version None)
Quarter: 2011Q4

REPORT INFORMATION
  Report Type: 
  Country: None (occurrence: None)
  Receive Date: 20111102
  Receipt Date: 20100924
  Transmission Date: 20120403
  Serious: No
  Sender: FDA-Public Use
  Company Number: US-BAYER-201034804NA

PATIENT
  Age: 77 Year
  Sex: Female

DRUGS (4)
  1. AVELOX [Suspect]
     Indication: PNEUMONIA
     Dosage: 40 MG, QD
     Route: 048
     Dates: start: 20100918, end: 20100920
  2. METOPROLOL TARTRATE [Concomitant]
  3. PRAVASTATIN [Concomitant]
  4. SYNTHROID [Concomitant]

REACTIONS (4)
  - VOMITING [None]
  - HEADACHE [None]
  - BACK PAIN [None]
  - NAUSEA [None]
